FAERS Safety Report 5955694-6 (Version None)
Quarter: 2008Q4

REPORT INFORMATION
  Report Type: 
  Country: None (occurrence: None)
  Receive Date: 20081117
  Receipt Date: 20081106
  Transmission Date: 20090506
  Serious: Yes (Other)
  Sender: FDA-Public Use
  Company Number: US-PFIZER INC-2008059064

PATIENT
  Sex: Female
  Weight: 58.5 kg

DRUGS (9)
  1. CHANTIX [Suspect]
     Indication: SMOKING CESSATION THERAPY
     Route: 048
     Dates: start: 20080401
  2. LORAZEPAM [Concomitant]
  3. LIPITOR [Concomitant]
  4. ATENOLOL [Concomitant]
  5. ACETYLSALICYLIC ACID SRT [Concomitant]
  6. LISINOPRIL [Concomitant]
  7. PAROXETINE HCL [Concomitant]
  8. FOLIC ACID [Concomitant]
  9. CLONAZEPAM [Concomitant]

REACTIONS (7)
  - CATARACT [None]
  - CONFUSIONAL STATE [None]
  - DEPRESSION [None]
  - MACULAR DEGENERATION [None]
  - NERVE INJURY [None]
  - SUICIDAL IDEATION [None]
  - VISUAL ACUITY REDUCED [None]
